FAERS Safety Report 15189892 (Version 4)
Quarter: 2018Q4

REPORT INFORMATION
  Report Type: Report from Study
  Country: US (occurrence: US)
  Receive Date: 20180724
  Receipt Date: 20181011
  Transmission Date: 20190204
  Serious: No
  Sender: FDA-Public Use
  Company Number: US-SA-2018SA195365

PATIENT
  Age: 32 Year
  Sex: Female
  Weight: 131 kg

DRUGS (14)
  1. AFRIN ALLERGY [PHENYLEPHRINE HYDROCHLORIDE] [Concomitant]
     Active Substance: PHENYLEPHRINE HYDROCHLORIDE
     Dosage: UNK UNK, QD
     Route: 045
     Dates: start: 20170710, end: 20170710
  2. BREO ELLIPTA [Concomitant]
     Active Substance: FLUTICASONE FUROATE\VILANTEROL TRIFENATATE
     Dosage: UNK
     Route: 055
     Dates: start: 20170710
  3. SPIRIVA [Concomitant]
     Active Substance: TIOTROPIUM BROMIDE MONOHYDRATE
     Dosage: UNK
     Route: 055
     Dates: start: 20170710
  4. MONTELUKAST [Concomitant]
     Active Substance: MONTELUKAST SODIUM
     Dosage: 10 MG
     Route: 048
     Dates: start: 20170504
  5. IPRATROPIUM [Concomitant]
     Active Substance: IPRATROPIUM
     Dosage: 3 ML
     Route: 055
     Dates: start: 20170709, end: 20170709
  6. AZITHROMYCIN ANHYDROUS. [Concomitant]
     Active Substance: AZITHROMYCIN ANHYDROUS
     Dosage: 250 UNK
     Route: 048
     Dates: start: 20170711, end: 20170714
  7. PLACEBO [Suspect]
     Active Substance: UNSPECIFIED INGREDIENT
     Indication: NASAL POLYPS
     Dosage: 2 ML
     Route: 058
     Dates: start: 20170710
  8. FLEXERIL [CEFIXIME] [Concomitant]
     Dosage: 10 MG
     Route: 048
     Dates: start: 20170618, end: 20170710
  9. KETOROLAC [Concomitant]
     Active Substance: KETOROLAC\KETOROLAC TROMETHAMINE
     Dosage: 15 MG, QD
     Route: 042
     Dates: start: 20170709, end: 20170709
  10. KETOROLAC [Concomitant]
     Active Substance: KETOROLAC\KETOROLAC TROMETHAMINE
     Dosage: 30 UNK
     Route: 030
     Dates: start: 20170711, end: 20170711
  11. MOMETASONE FUROATE. [Suspect]
     Active Substance: MOMETASONE FUROATE
     Indication: NASAL POLYPS
     Dosage: 400 UG, QD
     Route: 045
     Dates: start: 20170615, end: 20170817
  12. PONTOCAINE [Concomitant]
     Active Substance: TETRACAINE HYDROCHLORIDE
     Dosage: UNK
     Route: 045
     Dates: start: 20170710, end: 20170710
  13. NAPROXEN. [Concomitant]
     Active Substance: NAPROXEN
     Dosage: 550 MG
     Route: 048
     Dates: start: 20170710
  14. AZITHROMYCIN ANHYDROUS. [Concomitant]
     Active Substance: AZITHROMYCIN ANHYDROUS
     Dosage: 500 MG, QD
     Route: 048
     Dates: start: 20170709, end: 20170709

REACTIONS (1)
  - Vulvovaginitis trichomonal [Recovered/Resolved]

NARRATIVE: CASE EVENT DATE: 20170711
